FAERS Safety Report 23537536 (Version 4)
Quarter: 2025Q2

REPORT INFORMATION
  Report Type: Report from Study
  Country: US (occurrence: US)
  Receive Date: 20240219
  Receipt Date: 20250501
  Transmission Date: 20250717
  Serious: Yes (Other)
  Sender: AURINIA PHARMACEUTICALS
  Company Number: US-AURINIA PHARMACEUTICALS INC.-AUR-004348

PATIENT
  Age: 52 Year
  Sex: Female
  Weight: 43.537 kg

DRUGS (15)
  1. LUPKYNIS [Suspect]
     Active Substance: VOCLOSPORIN
     Indication: Lupus nephritis
     Dosage: 7.9 MILLIGRAM, BID
     Route: 048
     Dates: start: 20220812
  2. LUPKYNIS [Suspect]
     Active Substance: VOCLOSPORIN
     Dosage: 7.9 MILLIGRAM, BID
     Route: 048
     Dates: start: 20220813
  3. LUPKYNIS [Suspect]
     Active Substance: VOCLOSPORIN
     Dosage: 7.9 MILLIGRAM, BID
     Route: 048
     Dates: start: 20220906
  4. LUPKYNIS [Suspect]
     Active Substance: VOCLOSPORIN
  5. LUPKYNIS [Suspect]
     Active Substance: VOCLOSPORIN
     Dosage: 7.9 MILLIGRAM, BID
     Route: 048
  6. ATORVASTATIN [Concomitant]
     Active Substance: ATORVASTATIN
     Indication: Product used for unknown indication
     Dosage: 20 MILLIGRAM, QD
     Route: 048
  7. CALCIUM [Concomitant]
     Active Substance: CALCIUM
     Indication: Product used for unknown indication
     Dosage: 600 MILLIGRAM, QD
     Route: 048
     Dates: start: 20100708
  8. HYDROXYCHLOROQUINE [Concomitant]
     Active Substance: HYDROXYCHLOROQUINE
     Indication: Product used for unknown indication
     Dosage: 200 MILLIGRAM, QD
     Route: 048
  9. LEVOTHYROXINE [Concomitant]
     Active Substance: LEVOTHYROXINE
     Indication: Product used for unknown indication
     Dosage: 100 MICROGRAM, QD
     Route: 048
  10. LIOTHYRONINE [Concomitant]
     Active Substance: LIOTHYRONINE
     Indication: Product used for unknown indication
     Dosage: 5 MICROGRAM, QD
     Route: 048
  11. MYCOPHENOLATE MOFETIL [Concomitant]
     Active Substance: MYCOPHENOLATE MOFETIL
     Indication: Product used for unknown indication
     Dosage: 500 MILLIGRAM, BID
     Route: 048
  12. OMEPRAZOLE [Concomitant]
     Active Substance: OMEPRAZOLE
     Indication: Product used for unknown indication
     Dosage: 20 MILLIGRAM, QD
  13. PILOCARPINE [Concomitant]
     Active Substance: PILOCARPINE
     Indication: Product used for unknown indication
     Dates: start: 20090629
  14. PREDNISONE [Concomitant]
     Active Substance: PREDNISONE
     Indication: Product used for unknown indication
     Dosage: 1 DOSAGE FORM, QD
     Route: 048
  15. CELLCEPT [Concomitant]
     Active Substance: MYCOPHENOLATE MOFETIL
     Indication: Product used for unknown indication

REACTIONS (13)
  - Macular degeneration [Unknown]
  - Dry eye [Unknown]
  - Gastroenteritis viral [Unknown]
  - Nail infection [Not Recovered/Not Resolved]
  - Immune system disorder [Unknown]
  - Contusion [Recovering/Resolving]
  - Pterygium [Unknown]
  - Pyrexia [Unknown]
  - Eye inflammation [Unknown]
  - Pelvic pain [Unknown]
  - Cough [Unknown]
  - Headache [Recovered/Resolved]
  - Product dose omission issue [Unknown]

NARRATIVE: CASE EVENT DATE: 20230330
